FAERS Safety Report 20666637 (Version 1)
Quarter: 2022Q2

REPORT INFORMATION
  Report Type: Spontaneous
  Country: DE (occurrence: DE)
  Receive Date: 20220403
  Receipt Date: 20220403
  Transmission Date: 20220720
  Serious: Yes (Hospitalization, Other)
  Sender: FDA-Public Use
  Company Number: DE-BAXTER-2013BAX012052

PATIENT
  Sex: Female

DRUGS (8)
  1. ETORICOXIB [Suspect]
     Active Substance: ETORICOXIB
     Indication: Metastatic malignant melanoma
     Dosage: 60 MILLIGRAM
     Route: 048
     Dates: start: 20121120
  2. ETORICOXIB [Suspect]
     Active Substance: ETORICOXIB
     Indication: Product used for unknown indication
     Dosage: 60 MILLIGRAM
     Route: 048
     Dates: start: 20130319
  3. PIOGLITAZONE [Suspect]
     Active Substance: PIOGLITAZONE
     Indication: Product used for unknown indication
     Dosage: 60 MILLIGRAM
     Route: 048
     Dates: start: 20121120
  4. PIOGLITAZONE [Suspect]
     Active Substance: PIOGLITAZONE
     Indication: Metastatic malignant melanoma
     Dosage: 60 MILLIGRAM
     Route: 048
     Dates: start: 20130319
  5. TROFOSFAMIDE [Suspect]
     Active Substance: TROFOSFAMIDE
     Indication: Metastatic malignant melanoma
     Dosage: 150 MILLIGRAM, ONCE A DAY
     Route: 048
     Dates: start: 20121120
  6. TROFOSFAMIDE [Suspect]
     Active Substance: TROFOSFAMIDE
     Indication: Product used for unknown indication
     Dosage: 150 MILLIGRAM, ONCE A DAY
     Route: 048
     Dates: start: 20130319
  7. TEMSIROLIMUS [Suspect]
     Active Substance: TEMSIROLIMUS
     Indication: Metastatic malignant melanoma
     Dosage: 15 MILLIGRAM
     Route: 042
     Dates: start: 20121120
  8. TEMSIROLIMUS [Suspect]
     Active Substance: TEMSIROLIMUS
     Indication: Product used for unknown indication
     Dosage: 15 MILLIGRAM
     Route: 042
     Dates: start: 20130314, end: 20130321

REACTIONS (2)
  - Escherichia urinary tract infection [Unknown]
  - Tumour pain [Recovered/Resolved with Sequelae]

NARRATIVE: CASE EVENT DATE: 20130320
